FAERS Safety Report 10024361 (Version 2)
Quarter: 2014Q2

REPORT INFORMATION
  Report Type: Spontaneous
  Country: US (occurrence: US)
  Receive Date: 20140320
  Receipt Date: 20140424
  Transmission Date: 20141212
  Serious: No
  Sender: FDA-Public Use
  Company Number: US-009507513-1403USA002873

PATIENT
  Age: 57 Year
  Sex: Female
  Weight: 73.2 kg

DRUGS (5)
  1. OXYTROL FOR WOMEN [Suspect]
     Indication: INCONTINENCE
     Dosage: UNK, Q4D
     Route: 062
     Dates: start: 20140214
  2. CALCIUM D3 [Concomitant]
     Indication: OSTEOPOROSIS PROPHYLAXIS
     Dosage: 1000 IU, UNKNOWN
  3. ATORVASTATIN [Concomitant]
     Indication: BLOOD CHOLESTEROL
     Dosage: 40 MG, UNKNOWN
  4. ACYCLOVIR [Concomitant]
     Indication: HERPES VIRUS INFECTION
     Dosage: 400 MG, UNKNOWN
  5. LOSARTAN POTASSIUM [Concomitant]
     Indication: HYPERTENSION
     Dosage: N25 MG, UNKNOWN

REACTIONS (2)
  - Drug administered at inappropriate site [Unknown]
  - Product adhesion issue [Unknown]
